FAERS Safety Report 21693635 (Version 1)
Quarter: 2022Q4

REPORT INFORMATION
  Report Type: Spontaneous
  Country: SI (occurrence: SI)
  Receive Date: 20221207
  Receipt Date: 20221207
  Transmission Date: 20230112
  Serious: Yes (Death)
  Sender: FDA-Public Use
  Company Number: SI-LA JOLLA PHARMACEUTICAL COMPANY-0000422

PATIENT

DRUGS (3)
  1. GIAPREZA [Suspect]
     Active Substance: ANGIOTENSIN II
     Indication: Vasoplegia syndrome
     Dosage: UNK
  2. GIAPREZA [Suspect]
     Active Substance: ANGIOTENSIN II
     Indication: Shock
  3. GIAPREZA [Suspect]
     Active Substance: ANGIOTENSIN II
     Indication: Distributive shock

REACTIONS (1)
  - Sepsis [Fatal]
